FAERS Safety Report 9235909 (Version 2)
Quarter: 2013Q2

REPORT INFORMATION
  Report Type: Spontaneous
  Country: US (occurrence: US)
  Receive Date: 20130417
  Receipt Date: 20130506
  Transmission Date: 20140414
  Serious: Yes (Death)
  Sender: FDA-Public Use
  Company Number: US-ELI_LILLY_AND_COMPANY-US201304001149

PATIENT
  Sex: Female
  Weight: 76.19 kg

DRUGS (6)
  1. CYMBALTA [Suspect]
     Indication: DEPRESSION
     Dosage: 60 MG, QD
     Route: 048
     Dates: start: 20080321
  2. CYMBALTA [Suspect]
     Dosage: 120 MG, QD
     Route: 048
  3. ALTACE [Concomitant]
     Dosage: 2.5 MG, UNK
     Dates: start: 2006
  4. PRAVASTATIN [Concomitant]
     Dosage: 20 MG, UNK
     Dates: start: 20080516
  5. WELLBUTRIN SR [Concomitant]
     Dosage: 200 MG, UNK
     Dates: start: 20100202
  6. NEXIUM [Concomitant]
     Dosage: 40 MG, UNK
     Dates: start: 20100513

REACTIONS (1)
  - Cerebrovascular accident [Fatal]
